FAERS Safety Report 4285683-1 (Version None)
Quarter: 2004Q1

REPORT INFORMATION
  Report Type: 
  Country: None (occurrence: None)
  Receive Date: 20040103
  Receipt Date: 20040127
  Transmission Date: 20041129
  Serious: Yes (Death)
  Sender: FDA-Public Use
  Company Number: 7271

PATIENT
  Age: 75 Year
  Sex: Female

DRUGS (9)
  1. METHOTREXATE [Suspect]
  2. LEFLUNOMIDE [Suspect]
     Dosage: PO
     Route: 048
     Dates: end: 20021106
  3. PREDNISOLONE [Suspect]
  4. MIXTARD HUMAN 70/30 [Concomitant]
  5. FOLIC ACID [Concomitant]
  6. PERINDOPRIL ERBUMINE [Concomitant]
  7. GEMFIPROZIL [Concomitant]
  8. FUROSEMIDE [Concomitant]
  9. ALBUTAMOL SULFATE [Concomitant]

REACTIONS (2)
  - IMMUNE SYSTEM DISORDER [None]
  - RESPIRATORY DISORDER [None]
